FAERS Safety Report 16106376 (Version 1)
Quarter: 2019Q1

REPORT INFORMATION
  Report Type: Spontaneous
  Country: US (occurrence: US)
  Receive Date: 20190322
  Receipt Date: 20190322
  Transmission Date: 20190418
  Serious: No
  Sender: FDA-Public Use
  Company Number: US-ENDO PHARMACEUTICALS INC-2018-021010

PATIENT
  Age: 35 Year
  Sex: Male
  Weight: 99.77 kg

DRUGS (13)
  1. AVEED [Suspect]
     Active Substance: TESTOSTERONE UNDECANOATE
     Dosage: 750 MG, SINGLE
     Route: 030
     Dates: start: 20171011, end: 20171011
  2. FORTESTA [Concomitant]
     Active Substance: TESTOSTERONE
     Indication: HYPOGONADISM
  3. TESTIM [Concomitant]
     Active Substance: TESTOSTERONE
     Indication: HYPOGONADISM
  4. ANDROGEL [Concomitant]
     Active Substance: TESTOSTERONE
     Indication: HYPOGONADISM
  5. LOSARTAN POTASSIUM. [Concomitant]
     Active Substance: LOSARTAN POTASSIUM
     Indication: PRODUCT USED FOR UNKNOWN INDICATION
  6. OMEPRAZOLE. [Concomitant]
     Active Substance: OMEPRAZOLE
     Indication: PRODUCT USED FOR UNKNOWN INDICATION
  7. AVEED [Suspect]
     Active Substance: TESTOSTERONE UNDECANOATE
     Indication: HYPOGONADISM
     Dosage: 750 MG, SINGLE
     Route: 030
     Dates: start: 20171220, end: 20171220
  8. ALLOPURINOL. [Concomitant]
     Active Substance: ALLOPURINOL
     Indication: PRODUCT USED FOR UNKNOWN INDICATION
     Dosage: 100 MG, UNK
     Route: 048
  9. AVEED [Suspect]
     Active Substance: TESTOSTERONE UNDECANOATE
     Dosage: 750 MG, SINGLE
     Route: 030
     Dates: start: 20170524, end: 20170524
  10. AVEED [Suspect]
     Active Substance: TESTOSTERONE UNDECANOATE
     Dosage: 750 MG, SINGLE
     Route: 030
     Dates: start: 20170802, end: 20170802
  11. TESTOSTERONE. [Suspect]
     Active Substance: TESTOSTERONE
     Indication: HYPOGONADISM
     Dosage: 150-200 MG, AT WEEKS 7,8 AND 9 AFTER AVEED INJECTION AS NEEDED
     Route: 030
  12. AVEED [Suspect]
     Active Substance: TESTOSTERONE UNDECANOATE
     Dosage: 750 MG, EVERY TEN WEEKS
     Route: 030
  13. AVEED [Suspect]
     Active Substance: TESTOSTERONE UNDECANOATE
     Dosage: 750 MG, SINGLE
     Route: 030
     Dates: start: 20170314, end: 20170314

REACTIONS (3)
  - Drug effect decreased [Not Recovered/Not Resolved]
  - Cough [Recovered/Resolved]
  - Flushing [Recovered/Resolved]

NARRATIVE: CASE EVENT DATE: 201705
